FAERS Safety Report 19398584 (Version 1)
Quarter: 2021Q2

REPORT INFORMATION
  Report Type: Spontaneous
  Country: US (occurrence: US)
  Receive Date: 20210610
  Receipt Date: 20210610
  Transmission Date: 20210717
  Serious: No
  Sender: FDA-Public Use
  Company Number: None

PATIENT
  Age: 75 Year
  Sex: Female
  Weight: 58.97 kg

DRUGS (1)
  1. PIQRAY [Suspect]
     Active Substance: ALPELISIB
     Indication: BREAST CANCER FEMALE
     Dosage: ?          OTHER DOSE:TAKE 2 TABLETS;?
     Route: 048
     Dates: start: 202105

REACTIONS (2)
  - Therapy interrupted [None]
  - Hospitalisation [None]
